FAERS Safety Report 6768778-X (Version None)
Quarter: 2010Q2

REPORT INFORMATION
  Report Type: 
  Country: None (occurrence: None)
  Receive Date: 20100611
  Receipt Date: 20100602
  Transmission Date: 20101027
  Serious: Yes (Death, Congenital Anomaly, Other)
  Sender: FDA-Public Use
  Company Number: AUR-APL-2010-01487

PATIENT

DRUGS (5)
  1. CITALOPRAM HYDROBROMIDE [Suspect]
     Indication: DEPRESSION
     Dosage: TRANSPLACENTAL
     Route: 064
     Dates: end: 20100101
  2. REBIF [Suspect]
     Indication: MULTIPLE SCLEROSIS
     Dosage: 44 MCG, 3XWK, TRANSPLACENT
     Route: 064
     Dates: start: 20090301, end: 20100315
  3. ZOLOFT [Concomitant]
  4. ATENOLOL [Concomitant]
  5. TYLENOL [Concomitant]

REACTIONS (3)
  - MATERNAL DRUGS AFFECTING FOETUS [None]
  - PLACENTAL TRANSFUSION SYNDROME [None]
  - TRISOMY 21 [None]
